FAERS Safety Report 21591968 (Version 8)
Quarter: 2024Q3

REPORT INFORMATION
  Report Type: Report from Study
  Country: JP (occurrence: JP)
  Receive Date: 20221114
  Receipt Date: 20240731
  Transmission Date: 20241016
  Serious: Yes (Hospitalization, Other)
  Sender: PFIZER
  Company Number: JP-PFIZER INC-PV202200102559

PATIENT
  Age: 39 Year
  Sex: Female
  Weight: 53 kg

DRUGS (8)
  1. SIROLIMUS [Suspect]
     Active Substance: SIROLIMUS
     Indication: Lymphangiectasia
     Dosage: 2 MG, 1X/DAY (2 MG,1 D)
     Route: 048
     Dates: start: 20220615, end: 20230301
  2. SIROLIMUS [Suspect]
     Active Substance: SIROLIMUS
     Indication: Lymphangiectasia
  3. FUROSEMIDE [Concomitant]
     Active Substance: FUROSEMIDE
     Indication: Lymphangiectasia
     Dosage: 40 MG,1 D
     Route: 048
  4. FUROSEMIDE [Concomitant]
     Active Substance: FUROSEMIDE
     Indication: Ascites
  5. SPIRONOLACTONE [Concomitant]
     Active Substance: SPIRONOLACTONE
     Indication: Lymphangiectasia
     Dosage: 25 MG,1 D
     Route: 048
  6. SPIRONOLACTONE [Concomitant]
     Active Substance: SPIRONOLACTONE
     Indication: Ascites
  7. SODIUM GUALENATE MONOHYDRATE [Concomitant]
     Active Substance: SODIUM GUALENATE MONOHYDRATE
     Dosage: UNK (OROPHARINGEAL)
     Dates: start: 20220615, end: 202207
  8. DEXAMETHASONE [Concomitant]
     Active Substance: DEXAMETHASONE
     Dosage: UNK
     Route: 065
     Dates: start: 20220615, end: 202207

REACTIONS (5)
  - Cataract [Not Recovered/Not Resolved]
  - Incisional hernia [Not Recovered/Not Resolved]
  - Abdominal hernia [Not Recovered/Not Resolved]
  - Stomatitis [Recovered/Resolved]
  - Diarrhoea [Recovered/Resolved]

NARRATIVE: CASE EVENT DATE: 20220622
